FAERS Safety Report 6656212-X (Version None)
Quarter: 2010Q1

REPORT INFORMATION
  Report Type: 
  Country: None (occurrence: None)
  Receive Date: 20100326
  Receipt Date: 20100326
  Transmission Date: 20100710
  Serious: Yes (Death, Life-Threatening)
  Sender: FDA-Public Use
  Company Number: None

PATIENT
  Sex: Female
  Weight: 86.5 kg

DRUGS (17)
  1. RIFADIN [Suspect]
     Indication: ENDOCARDITIS STAPHYLOCOCCAL
     Dosage: 300 MG DAILY PO
     Route: 048
     Dates: start: 20100209, end: 20100218
  2. HEPARIN [Suspect]
     Indication: THROMBOSIS PROPHYLAXIS
     Dosage: 5,000 UNITS EVERY 8 HOURS SQ
     Route: 058
     Dates: start: 20100209, end: 20100218
  3. ACETAMINOPHEN [Concomitant]
  4. PROMETHAZINE [Concomitant]
  5. VANCOMYCIN [Concomitant]
  6. PIPERACILLIN AND TAZOBACTAM [Concomitant]
  7. HOME MEDICATIONS: FUROSEMIDE [Concomitant]
  8. INSULIN [Concomitant]
  9. ISOSORBIDE MONOHYDRATE [Concomitant]
  10. SIMVASTATIN [Concomitant]
  11. FENOFIBRATE [Concomitant]
  12. FAMOTIDINE [Concomitant]
  13. ASPIRIN [Concomitant]
  14. DIGOXIN [Concomitant]
  15. DOCUSATE [Concomitant]
  16. TRAZODONE [Concomitant]
  17. METOPROLOL TARTRATE [Concomitant]

REACTIONS (6)
  - EPISTAXIS [None]
  - HEPATOMEGALY [None]
  - PLATELET COUNT DECREASED [None]
  - PURPURA [None]
  - SPLENOMEGALY [None]
  - VENTRICULAR TACHYCARDIA [None]
